FAERS Safety Report 11151334 (Version 5)
Quarter: 2020Q3

REPORT INFORMATION
  Report Type: Report from Study
  Country: US (occurrence: US)
  Receive Date: 20150601
  Receipt Date: 20160310
  Transmission Date: 20201104
  Serious: Yes (Hospitalization)
  Sender: FDA-Public Use
  Company Number: US-JNJFOC-20150515280

PATIENT
  Age: 70 Year
  Sex: Male

DRUGS (23)
  1. ENOXAPARIN [Concomitant]
     Active Substance: ENOXAPARIN
  2. ROSUVASTATIN. [Concomitant]
     Active Substance: ROSUVASTATIN
     Route: 048
  3. ACETAMINOPHEN. [Concomitant]
     Active Substance: ACETAMINOPHEN
     Indication: PYREXIA
  4. SENNA FRUIT [Concomitant]
     Route: 048
  5. LACTULOSE. [Concomitant]
     Active Substance: LACTULOSE
     Route: 048
  6. SODIUM BICARBONATE. [Concomitant]
     Active Substance: SODIUM BICARBONATE
  7. MAGNESIUM OXIDE. [Concomitant]
     Active Substance: MAGNESIUM OXIDE
     Route: 048
  8. LORATADINE. [Concomitant]
     Active Substance: LORATADINE
     Route: 048
  9. ONDANSETRON [Concomitant]
     Active Substance: ONDANSETRON
     Route: 048
  10. IBRUTINIB [Suspect]
     Active Substance: IBRUTINIB
     Route: 048
  11. LENALIDOMIDE [Suspect]
     Active Substance: LENALIDOMIDE
     Indication: DIFFUSE LARGE B-CELL LYMPHOMA
     Dosage: 25 MG, QD X 7 DAYS
     Route: 048
     Dates: start: 20150501
  12. R?EPOCH THERAPY [Suspect]
     Active Substance: CYCLOPHOSPHAMIDE\DOXORUBICIN\ETOPOSIDE\PREDNISONE\RITUXIMAB\VINCRISTINE
     Indication: DIFFUSE LARGE B-CELL LYMPHOMA
     Dates: start: 20150501
  13. DOCUSATE SODIUM. [Concomitant]
     Active Substance: DOCUSATE SODIUM
     Route: 048
  14. GABAPENTIN. [Concomitant]
     Active Substance: GABAPENTIN
     Route: 048
  15. CARBOXYMETHYLCELLULOSE SODIUM. [Concomitant]
     Active Substance: CARBOXYMETHYLCELLULOSE SODIUM
     Route: 047
  16. SULFAMETHOXAZOLE/TRIMETHOPRIM [Concomitant]
     Active Substance: SULFAMETHOXAZOLE\TRIMETHOPRIM
     Dosage: 800MG/160
     Route: 048
  17. CHLORHEXIDINE GLUCONATE. [Concomitant]
     Active Substance: CHLORHEXIDINE GLUCONATE
     Route: 061
  18. IBRUTINIB [Suspect]
     Active Substance: IBRUTINIB
     Indication: DIFFUSE LARGE B-CELL LYMPHOMA
     Dosage: 560 MG, QD 7 DAYS
     Route: 048
     Dates: start: 20150501
  19. BISOPROLOL [Concomitant]
     Active Substance: BISOPROLOL
     Route: 048
  20. OMEPRAZOLE. [Concomitant]
     Active Substance: OMEPRAZOLE
     Route: 048
  21. ONDANSETRON [Concomitant]
     Active Substance: ONDANSETRON
     Route: 048
  22. GUAIFENESIN. [Concomitant]
     Active Substance: GUAIFENESIN
     Indication: COUGH
     Dosage: 100MG PER 5 ML
     Route: 048
  23. CODEINE [Concomitant]
     Active Substance: CODEINE
     Indication: PAIN
     Route: 048

REACTIONS (2)
  - Fluid overload [Recovered/Resolved]
  - Retroperitoneal haemorrhage [Recovered/Resolved]

NARRATIVE: CASE EVENT DATE: 20150512
